FAERS Safety Report 23028671 (Version 1)
Quarter: 2023Q4

REPORT INFORMATION
  Report Type: Spontaneous
  Country: US (occurrence: US)
  Receive Date: 20231004
  Receipt Date: 20231004
  Transmission Date: 20240110
  Serious: No
  Sender: FDA-Public Use
  Company Number: US-Horizon-KRY-0776-2020

PATIENT

DRUGS (5)
  1. KRYSTEXXA [Suspect]
     Active Substance: PEGLOTICASE
     Indication: Gout
     Dosage: MONTHLY
     Route: 042
     Dates: start: 202001
  2. PREDNISONE [Concomitant]
     Active Substance: PREDNISONE
     Dosage: 5MG
  3. METHOTREXATE [Concomitant]
     Active Substance: METHOTREXATE
     Dosage: 4 PILLS PER WEEK 4 SEPARATED DOSES
  4. FOLIC ACID [Concomitant]
     Active Substance: FOLIC ACID
  5. COLCHICINE [Concomitant]
     Active Substance: COLCHICINE
     Dosage: 2 PILLS PER DAY

REACTIONS (2)
  - Gout [Recovered/Resolved]
  - Off label use [Unknown]

NARRATIVE: CASE EVENT DATE: 20200101
